FAERS Safety Report 16390612 (Version 2)
Quarter: 2019Q2

REPORT INFORMATION
  Report Type: Spontaneous
  Country: JP (occurrence: JP)
  Receive Date: 20190604
  Receipt Date: 20190610
  Transmission Date: 20190711
  Serious: Yes (Hospitalization, Other)
  Sender: FDA-Public Use
  Company Number: JP-DSJP-DSJ-2019-118567AA

PATIENT

DRUGS (1)
  1. OLMETEC OD [Suspect]
     Active Substance: OLMESARTAN MEDOXOMIL
     Indication: HYPERTENSION
     Dosage: 20MG/DAY
     Route: 048

REACTIONS (4)
  - Foetal growth restriction [Unknown]
  - Maternal exposure during pregnancy [Unknown]
  - Renal disorder [Recovering/Resolving]
  - Gestational hypertension [Recovering/Resolving]
